FAERS Safety Report 12266943 (Version 2)
Quarter: 2016Q2

REPORT INFORMATION
  Report Type: Report from Study
  Country: GB (occurrence: GB)
  Receive Date: 20160414
  Receipt Date: 20160525
  Transmission Date: 20160815
  Serious: Yes (Hospitalization, Other)
  Sender: FDA-Public Use
  Company Number: GB-AMGEN-GBRSL2016045232

PATIENT
  Age: 39 Year
  Sex: Male

DRUGS (1)
  1. ARANESP [Suspect]
     Active Substance: DARBEPOETIN ALFA
     Indication: PRODUCT USED FOR UNKNOWN INDICATION
     Dosage: 130 MCG, UNK
     Route: 065

REACTIONS (5)
  - Blood calcium abnormal [Unknown]
  - Acute kidney injury [Unknown]
  - Blood potassium abnormal [Unknown]
  - Haemodialysis [Not Recovered/Not Resolved]
  - Blood magnesium abnormal [Unknown]

NARRATIVE: CASE EVENT DATE: 20160417
